FAERS Safety Report 23165682 (Version 2)
Quarter: 2025Q3

REPORT INFORMATION
  Report Type: Spontaneous
  Country: EU (occurrence: EU)
  Receive Date: 20231109
  Receipt Date: 20250827
  Transmission Date: 20251021
  Serious: Yes (Hospitalization)
  Sender: MYLAN
  Company Number: None

PATIENT
  Age: 74 Year
  Sex: Male

DRUGS (48)
  1. VALSARTAN [Interacting]
     Active Substance: VALSARTAN
     Indication: Product used for unknown indication
     Dosage: 05/160 MG: 0-1-0 TABLETS/DAY
     Dates: end: 20230203
  2. VALSARTAN [Interacting]
     Active Substance: VALSARTAN
     Dosage: 05/160 MG: 0-1-0 TABLETS/DAY
     Route: 048
     Dates: end: 20230203
  3. VALSARTAN [Interacting]
     Active Substance: VALSARTAN
     Dosage: 05/160 MG: 0-1-0 TABLETS/DAY
     Route: 048
     Dates: end: 20230203
  4. VALSARTAN [Interacting]
     Active Substance: VALSARTAN
     Dosage: 05/160 MG: 0-1-0 TABLETS/DAY
     Dates: end: 20230203
  5. FUROSEMIDE [Interacting]
     Active Substance: FUROSEMIDE
     Indication: Hypertension
     Dosage: 40 MILLIGRAM, QD1-1/2-0
  6. FUROSEMIDE [Interacting]
     Active Substance: FUROSEMIDE
     Dosage: 40 MILLIGRAM, QD1-1/2-0
     Route: 048
  7. FUROSEMIDE [Interacting]
     Active Substance: FUROSEMIDE
     Dosage: 40 MILLIGRAM, QD1-1/2-0
     Route: 048
  8. FUROSEMIDE [Interacting]
     Active Substance: FUROSEMIDE
     Dosage: 40 MILLIGRAM, QD1-1/2-0
  9. AMLODIPINE [Interacting]
     Active Substance: AMLODIPINE BESYLATE
     Indication: Product used for unknown indication
     Dosage: 05/160 MG: 0-1-0 TABLETS/DAY
     Dates: end: 20230203
  10. AMLODIPINE [Interacting]
     Active Substance: AMLODIPINE BESYLATE
     Dosage: 05/160 MG: 0-1-0 TABLETS/DAY
     Route: 048
     Dates: end: 20230203
  11. AMLODIPINE [Interacting]
     Active Substance: AMLODIPINE BESYLATE
     Dosage: 05/160 MG: 0-1-0 TABLETS/DAY
     Route: 048
     Dates: end: 20230203
  12. AMLODIPINE [Interacting]
     Active Substance: AMLODIPINE BESYLATE
     Dosage: 05/160 MG: 0-1-0 TABLETS/DAY
     Dates: end: 20230203
  13. DAPAGLIFLOZIN [Interacting]
     Active Substance: DAPAGLIFLOZIN
     Indication: Cardiac failure
     Dosage: 10 MILLIGRAM, QD,0-1-0
     Dates: end: 20230203
  14. DAPAGLIFLOZIN [Interacting]
     Active Substance: DAPAGLIFLOZIN
     Dosage: 10 MILLIGRAM, QD,0-1-0
     Route: 048
     Dates: end: 20230203
  15. DAPAGLIFLOZIN [Interacting]
     Active Substance: DAPAGLIFLOZIN
     Dosage: 10 MILLIGRAM, QD,0-1-0
     Route: 048
     Dates: end: 20230203
  16. DAPAGLIFLOZIN [Interacting]
     Active Substance: DAPAGLIFLOZIN
     Dosage: 10 MILLIGRAM, QD,0-1-0
     Dates: end: 20230203
  17. LANTUS [Concomitant]
     Active Substance: INSULIN GLARGINE
     Indication: Product used for unknown indication
  18. LANTUS [Concomitant]
     Active Substance: INSULIN GLARGINE
     Route: 065
  19. LANTUS [Concomitant]
     Active Substance: INSULIN GLARGINE
     Route: 065
  20. LANTUS [Concomitant]
     Active Substance: INSULIN GLARGINE
  21. JANUVIA [Concomitant]
     Active Substance: SITAGLIPTIN PHOSPHATE
     Indication: Product used for unknown indication
  22. JANUVIA [Concomitant]
     Active Substance: SITAGLIPTIN PHOSPHATE
     Route: 065
  23. JANUVIA [Concomitant]
     Active Substance: SITAGLIPTIN PHOSPHATE
     Route: 065
  24. JANUVIA [Concomitant]
     Active Substance: SITAGLIPTIN PHOSPHATE
  25. ATORVASTATIN [Concomitant]
     Active Substance: ATORVASTATIN
     Indication: Product used for unknown indication
  26. ATORVASTATIN [Concomitant]
     Active Substance: ATORVASTATIN
     Route: 065
  27. ATORVASTATIN [Concomitant]
     Active Substance: ATORVASTATIN
     Route: 065
  28. ATORVASTATIN [Concomitant]
     Active Substance: ATORVASTATIN
  29. ALFUZOSIN HYDROCHLORIDE [Concomitant]
     Active Substance: ALFUZOSIN HYDROCHLORIDE
     Indication: Product used for unknown indication
  30. ALFUZOSIN HYDROCHLORIDE [Concomitant]
     Active Substance: ALFUZOSIN HYDROCHLORIDE
     Route: 065
  31. ALFUZOSIN HYDROCHLORIDE [Concomitant]
     Active Substance: ALFUZOSIN HYDROCHLORIDE
     Route: 065
  32. ALFUZOSIN HYDROCHLORIDE [Concomitant]
     Active Substance: ALFUZOSIN HYDROCHLORIDE
  33. LANSOPRAZOLE [Concomitant]
     Active Substance: LANSOPRAZOLE
     Indication: Product used for unknown indication
  34. LANSOPRAZOLE [Concomitant]
     Active Substance: LANSOPRAZOLE
     Route: 065
  35. LANSOPRAZOLE [Concomitant]
     Active Substance: LANSOPRAZOLE
     Route: 065
  36. LANSOPRAZOLE [Concomitant]
     Active Substance: LANSOPRAZOLE
  37. OLODATEROL HYDROCHLORIDE\TIOTROPIUM BROMIDE MONOHYDRATE [Concomitant]
     Active Substance: OLODATEROL HYDROCHLORIDE\TIOTROPIUM BROMIDE MONOHYDRATE
     Indication: Product used for unknown indication
  38. OLODATEROL HYDROCHLORIDE\TIOTROPIUM BROMIDE MONOHYDRATE [Concomitant]
     Active Substance: OLODATEROL HYDROCHLORIDE\TIOTROPIUM BROMIDE MONOHYDRATE
     Route: 065
  39. OLODATEROL HYDROCHLORIDE\TIOTROPIUM BROMIDE MONOHYDRATE [Concomitant]
     Active Substance: OLODATEROL HYDROCHLORIDE\TIOTROPIUM BROMIDE MONOHYDRATE
     Route: 065
  40. OLODATEROL HYDROCHLORIDE\TIOTROPIUM BROMIDE MONOHYDRATE [Concomitant]
     Active Substance: OLODATEROL HYDROCHLORIDE\TIOTROPIUM BROMIDE MONOHYDRATE
  41. DOLIPRANE [Concomitant]
     Active Substance: ACETAMINOPHEN
     Indication: Product used for unknown indication
  42. DOLIPRANE [Concomitant]
     Active Substance: ACETAMINOPHEN
     Route: 065
  43. DOLIPRANE [Concomitant]
     Active Substance: ACETAMINOPHEN
     Route: 065
  44. DOLIPRANE [Concomitant]
     Active Substance: ACETAMINOPHEN
  45. SMECTA [Concomitant]
     Active Substance: MONTMORILLONITE
     Indication: Product used for unknown indication
  46. SMECTA [Concomitant]
     Active Substance: MONTMORILLONITE
     Route: 065
  47. SMECTA [Concomitant]
     Active Substance: MONTMORILLONITE
     Route: 065
  48. SMECTA [Concomitant]
     Active Substance: MONTMORILLONITE

REACTIONS (2)
  - Acute kidney injury [Recovering/Resolving]
  - Drug interaction [Unknown]

NARRATIVE: CASE EVENT DATE: 20230203
